FAERS Safety Report 11533029 (Version 5)
Quarter: 2016Q2

REPORT INFORMATION
  Report Type: Spontaneous
  Country: US (occurrence: US)
  Receive Date: 20150921
  Receipt Date: 20160421
  Transmission Date: 20160815
  Serious: Yes (Hospitalization, Other)
  Sender: FDA-Public Use
  Company Number: ADR-2015-01351

PATIENT
  Age: 46 Year
  Sex: Male

DRUGS (9)
  1. COPAXONE [Suspect]
     Active Substance: GLATIRAMER ACETATE
  2. CLONAZEPAM. [Suspect]
     Active Substance: CLONAZEPAM
     Dosage: 0.5 MG ORAL TABLET AND HALF A TAB ORAL WITH LUNCH OR 1 TAB ORALLY EVERY AM AND PM
     Route: 048
  3. CYMBALTA [Suspect]
     Active Substance: DULOXETINE HYDROCHLORIDE
     Dosage: 60 MG TWICE DAILY
     Route: 048
  4. BACLOFEN. [Suspect]
     Active Substance: BACLOFEN
     Indication: MUSCLE SPASMS
     Dosage: 1 TAB AS NEEDED
     Route: 048
  5. AMBIEN [Suspect]
     Active Substance: ZOLPIDEM TARTRATE
     Indication: INSOMNIA
     Dosage: 1 TAB EVERY BEDTIME AS NEEDED
     Route: 048
  6. DIOVAN [Suspect]
     Active Substance: VALSARTAN
     Dosage: 80 MG EVERY DAY
     Route: 048
  7. METOPROLOL. [Suspect]
     Active Substance: METOPROLOL
     Dosage: 2 TABS EVERY AM AND EVERY PM
     Route: 048
  8. OXYCONTIN [Suspect]
     Active Substance: OXYCODONE HYDROCHLORIDE
     Indication: PAIN
     Dosage: 20 MG THREE TIMES DAILY AS NEEDED
     Route: 048
  9. BACLOFEN. [Suspect]
     Active Substance: BACLOFEN
     Dosage: 57.02MCG/DAY
     Route: 037

REACTIONS (15)
  - Clonus [Unknown]
  - Neuralgia [Unknown]
  - Dysarthria [Unknown]
  - Multimorbidity [Unknown]
  - Gait disturbance [Unknown]
  - Spinal pain [Unknown]
  - Burning sensation [Unknown]
  - Pain in extremity [Unknown]
  - Muscle spasms [Unknown]
  - Adverse drug reaction [Unknown]
  - Performance status decreased [Unknown]
  - Secondary progressive multiple sclerosis [Unknown]
  - Back pain [Unknown]
  - Muscular weakness [Unknown]
  - Spinal cord injury [Unknown]

NARRATIVE: CASE EVENT DATE: 20150910
